FAERS Safety Report 22075650 (Version 1)
Quarter: 2023Q1

REPORT INFORMATION
  Report Type: Spontaneous
  Country: CN (occurrence: CN)
  Receive Date: 20230308
  Receipt Date: 20230308
  Transmission Date: 20230417
  Serious: Yes (Other)
  Sender: FDA-Public Use
  Company Number: CN-PFIZER INC-PV202300042451

PATIENT
  Age: 51 Year
  Sex: Female
  Weight: 75 kg

DRUGS (2)
  1. TYGACIL [Suspect]
     Active Substance: TIGECYCLINE
     Indication: Infection
     Dosage: 100 MG, 2X/DAY
     Route: 041
     Dates: start: 20220809, end: 20220815
  2. MEROPENEM [Concomitant]
     Active Substance: MEROPENEM
     Indication: Infection
     Dosage: 1 G, 3X/DAY
     Route: 041
     Dates: start: 20220809, end: 20220822

REACTIONS (1)
  - Coagulopathy [Recovering/Resolving]

NARRATIVE: CASE EVENT DATE: 20220815
